FAERS Safety Report 15324623 (Version 1)
Quarter: 2018Q3

REPORT INFORMATION
  Report Type: Spontaneous
  Country: US (occurrence: US)
  Receive Date: 20180828
  Receipt Date: 20180828
  Transmission Date: 20181010
  Serious: No
  Sender: FDA-Public Use
  Company Number: US-TEVA-2018-US-948194

PATIENT

DRUGS (1)
  1. ZOLPIDEM [Suspect]
     Active Substance: ZOLPIDEM\ZOLPIDEM TARTRATE

REACTIONS (6)
  - Confusional state [Unknown]
  - Anxiety [Unknown]
  - Insomnia [Unknown]
  - Hallucination [Unknown]
  - Agitation [Unknown]
  - Dizziness [Unknown]
